FAERS Safety Report 13369745 (Version 2)
Quarter: 2017Q2

REPORT INFORMATION
  Report Type: Report from Study
  Country: US (occurrence: US)
  Receive Date: 20170324
  Receipt Date: 20170403
  Transmission Date: 20170830
  Serious: Yes (Hospitalization)
  Sender: FDA-Public Use
  Company Number: US-GILEAD-2017-0263888

PATIENT
  Age: 66 Year
  Sex: Female
  Weight: 28.71 kg

DRUGS (14)
  1. LYRICA [Concomitant]
     Active Substance: PREGABALIN
  2. DICLOFENAC                         /00372302/ [Concomitant]
     Active Substance: DICLOFENAC
  3. OMEGA 3                            /01333901/ [Concomitant]
     Active Substance: FISH OIL\TOCOPHEROL
  4. TRAMADOL. [Concomitant]
     Active Substance: TRAMADOL
  5. LEVOTHYROXINE. [Concomitant]
     Active Substance: LEVOTHYROXINE
  6. FAMOTIDINE. [Concomitant]
     Active Substance: FAMOTIDINE
  7. ADCIRCA [Suspect]
     Active Substance: TADALAFIL
     Indication: PRODUCT USED FOR UNKNOWN INDICATION
     Route: 065
  8. PLAQUENIL                          /00072602/ [Concomitant]
     Active Substance: HYDROXYCHLOROQUINE DIPHOSPHATE
  9. MULTIVITAMIN                       /00097801/ [Concomitant]
     Active Substance: VITAMINS
  10. TADALAFIL [Concomitant]
     Active Substance: TADALAFIL
  11. AMBRISENTAN [Suspect]
     Active Substance: AMBRISENTAN
     Indication: PULMONARY ARTERIAL HYPERTENSION
     Dosage: 10 MG, QD
     Route: 065
  12. ASPIRIN                            /00002701/ [Concomitant]
     Active Substance: ASPIRIN
  13. AMBRISENTAN [Suspect]
     Active Substance: AMBRISENTAN
     Indication: SCLERODERMA
  14. BUMEX [Concomitant]
     Active Substance: BUMETANIDE

REACTIONS (4)
  - Product use issue [Recovered/Resolved]
  - Dyspnoea [Unknown]
  - Urinary tract infection [Unknown]
  - Constipation [Unknown]

NARRATIVE: CASE EVENT DATE: 201701
